FAERS Safety Report 8928089 (Version 1)
Quarter: 2012Q4

REPORT INFORMATION
  Report Type: 
  Country: US (occurrence: US)
  Receive Date: 20121128
  Receipt Date: 20121128
  Transmission Date: 20130627
  Serious: Yes (Hospitalization)
  Sender: FDA-Public Use
  Company Number: US-BAYER-2012-121931

PATIENT
  Age: 32 Year
  Sex: Female

DRUGS (1)
  1. GADAVIST [Suspect]
     Indication: PELVIC MRI
     Dosage: 8 ml, ONCE
     Route: 042
     Dates: start: 20121117, end: 20121117

REACTIONS (9)
  - Sneezing [None]
  - Paraesthesia oral [None]
  - Dyspnoea [None]
  - Throat tightness [None]
  - Tachycardia [None]
  - Hypotension [None]
  - Tachypnoea [None]
  - Cardiac disorder [Not Recovered/Not Resolved]
  - Cardiac failure [Not Recovered/Not Resolved]
